FAERS Safety Report 8598537-7 (Version None)
Quarter: 2012Q3

REPORT INFORMATION
  Report Type: 
  Country: None (occurrence: None)
  Receive Date: 20120816
  Receipt Date: 20120807
  Transmission Date: 20120928
  Serious: No
  Sender: FDA-Public Use
  Company Number: US-BAYER-2012-081657

PATIENT

DRUGS (5)
  1. ALEVE (CAPLET) [Suspect]
     Indication: PAIN
     Dosage: 2 DF, UNK
     Route: 048
  2. TRAMADOL [Concomitant]
  3. GLUCOSAMINE [Concomitant]
  4. VALIUM [Concomitant]
  5. WHITE WILLOW BARK [Concomitant]

REACTIONS (2)
  - INSOMNIA [None]
  - PAIN [None]
